FAERS Safety Report 19684323 (Version 2)
Quarter: 2022Q1

REPORT INFORMATION
  Report Type: Other
  Country: AU (occurrence: None)
  Receive Date: 20210811
  Receipt Date: 20220307
  Transmission Date: 20220423
  Serious: Yes (Other)
  Sender: FDA-Public Use
  Company Number: AU-ROCHE-2888326

PATIENT
  Sex: Female

DRUGS (1)
  1. OCREVUS [Suspect]
     Active Substance: OCRELIZUMAB
     Indication: Relapsing-remitting multiple sclerosis
     Route: 042
     Dates: start: 20200722

REACTIONS (3)
  - Multiple sclerosis [Unknown]
  - Therapeutic response shortened [Unknown]
  - Fatigue [Not Recovered/Not Resolved]
